FAERS Safety Report 17603185 (Version 1)
Quarter: 2020Q1

REPORT INFORMATION
  Report Type: Report from Study
  Country: GB (occurrence: GB)
  Receive Date: 20200331
  Receipt Date: 20200331
  Transmission Date: 20200409
  Serious: Yes (Other)
  Sender: FDA-Public Use
  Company Number: NVSC2020GB087498

PATIENT
  Sex: Male

DRUGS (1)
  1. ERELZI [Suspect]
     Active Substance: ETANERCEPT-SZZS
     Indication: PSORIATIC ARTHROPATHY
     Dosage: 50 MG, QW (1 WEEK)
     Route: 058
     Dates: start: 20191028

REACTIONS (3)
  - Product dose omission [Unknown]
  - Viral infection [Unknown]
  - Oropharyngeal pain [Unknown]
